FAERS Safety Report 21789024 (Version 1)
Quarter: 2022Q4

REPORT INFORMATION
  Report Type: Spontaneous
  Country: US (occurrence: None)
  Receive Date: 20221227
  Receipt Date: 20221227
  Transmission Date: 20230112
  Serious: Yes (Hospitalization)
  Sender: FDA-Public Use
  Company Number: None

PATIENT
  Age: 64 Year
  Sex: Female

DRUGS (4)
  1. PAXLOVID [Suspect]
     Active Substance: NIRMATRELVIR\RITONAVIR
     Indication: COVID-19
     Dosage: FREQUENCY : TWICE A DAY;?
     Route: 048
     Dates: start: 20221220, end: 20221224
  2. RANOLAZINE [Concomitant]
     Active Substance: RANOLAZINE
     Dates: start: 20170531
  3. FLECAINIDE [Concomitant]
     Active Substance: FLECAINIDE
     Dates: start: 20180524
  4. CLOPIDOGREL [Concomitant]
     Active Substance: CLOPIDOGREL BISULFATE
     Dates: start: 20201224

REACTIONS (2)
  - Contraindicated product prescribed [None]
  - Drug interaction [None]

NARRATIVE: CASE EVENT DATE: 20221220
